FAERS Safety Report 6878642-3 (Version None)
Quarter: 2010Q3

REPORT INFORMATION
  Report Type: 
  Country: None (occurrence: None)
  Receive Date: 20100728
  Receipt Date: 20100721
  Transmission Date: 20110219
  Serious: Yes (Hospitalization)
  Sender: FDA-Public Use
  Company Number: A0871669A

PATIENT
  Age: 63 Year
  Sex: Female

DRUGS (5)
  1. ADVAIR DISKUS 100/50 [Suspect]
     Indication: ASTHMA
     Dosage: 1PUFF TWICE PER DAY
     Route: 055
     Dates: start: 20100701, end: 20100714
  2. DIOVAN [Concomitant]
  3. BLOOD PRESSURE MEDICATION [Concomitant]
  4. SYNTHROID [Concomitant]
  5. SINGULAIR [Concomitant]

REACTIONS (4)
  - CARDIAC FLUTTER [None]
  - FEELING ABNORMAL [None]
  - HEART RATE INCREASED [None]
  - PNEUMONIA [None]
